FAERS Safety Report 23361248 (Version 1)
Quarter: 2024Q1

REPORT INFORMATION
  Report Type: Report from Study
  Country: TR (occurrence: TR)
  Receive Date: 20240103
  Receipt Date: 20240103
  Transmission Date: 20240410
  Serious: Yes (Death, Other)
  Sender: FDA-Public Use
  Company Number: TR-GILEAD-2024-0656971

PATIENT
  Age: 56 Year
  Sex: Female

DRUGS (2)
  1. LEDIPASVIR\SOFOSBUVIR [Suspect]
     Active Substance: LEDIPASVIR\SOFOSBUVIR
     Indication: Chronic hepatitis C
     Dosage: UNK (12 WEEKS, SECOND TIME, THE SAME TREATMENT WAS ADMINISTERED FOR 24 WEEKS)
     Route: 065
  2. RIBAVIRIN [Suspect]
     Active Substance: RIBAVIRIN
     Indication: Chronic hepatitis C
     Dosage: UNK (12 WEEKS, SECOND TIME, THE SAME TREATMENT WAS ADMINISTERED FOR 24 WEEKS)
     Route: 065

REACTIONS (1)
  - Hepatocellular carcinoma [Fatal]
